FAERS Safety Report 24194654 (Version 2)
Quarter: 2024Q4

REPORT INFORMATION
  Report Type: Spontaneous
  Country: JP (occurrence: JP)
  Receive Date: 20240809
  Receipt Date: 20241206
  Transmission Date: 20250115
  Serious: Yes (Other)
  Sender: BRISTOL-MYERS SQUIBB COMPANY
  Company Number: JP-BRISTOL-MYERS SQUIBB COMPANY-2024-122497

PATIENT
  Sex: Female

DRUGS (5)
  1. YERVOY [Suspect]
     Active Substance: IPILIMUMAB
     Indication: Malignant melanoma
  2. YERVOY [Suspect]
     Active Substance: IPILIMUMAB
  3. OPDIVO [Suspect]
     Active Substance: NIVOLUMAB
     Indication: Malignant melanoma
  4. OPDIVO [Suspect]
     Active Substance: NIVOLUMAB
  5. OPDIVO [Suspect]
     Active Substance: NIVOLUMAB

REACTIONS (4)
  - Sepsis [Unknown]
  - Septic shock [Unknown]
  - Polymyalgia rheumatica [Unknown]
  - Adrenocortical insufficiency acute [Unknown]
